FAERS Safety Report 20567335 (Version 1)
Quarter: 2022Q1

REPORT INFORMATION
  Report Type: Spontaneous
  Country: IT (occurrence: IT)
  Receive Date: 20220308
  Receipt Date: 20220308
  Transmission Date: 20220423
  Serious: Yes (Death, Other)
  Sender: FDA-Public Use
  Company Number: IT-PFIZER INC-202200110387

PATIENT
  Age: 14 Month
  Sex: Female

DRUGS (5)
  1. METHOTREXATE [Suspect]
     Active Substance: METHOTREXATE
     Indication: Medulloblastoma
     Dosage: UNK UNK, CYCLE ((8 G/M2 AT WEEK 0 AND 1, HIGH DOSE)
  2. CYCLOPHOSPHAMIDE [Suspect]
     Active Substance: CYCLOPHOSPHAMIDE
     Indication: Medulloblastoma
     Dosage: UNK UNK, CYCLE (4 G/M2 AT WEEK 7, HIGH DOSE)
  3. CARBOPLATIN [Suspect]
     Active Substance: CARBOPLATIN
     Indication: Medulloblastoma
     Dosage: 800 MILLIGRAM/SQ. METER, CYCLE (800 MG/M2, CYCLIC 7TH WEEK))
  4. VINCRISTINE SULFATE [Suspect]
     Active Substance: VINCRISTINE SULFATE
     Indication: Medulloblastoma
     Dosage: 1.4 MILLIGRAM/SQ. METER, CYCLE (1.4 MG/M2, CYCLIC AT WEEK 0 AND 1)
  5. ETOPOSIDE [Suspect]
     Active Substance: ETOPOSIDE
     Indication: Medulloblastoma
     Dosage: UNK, CYCLE (2.4 G/M2 AT WEEK 4, HIGH DOSE)

REACTIONS (1)
  - Cardiotoxicity [Fatal]
